FAERS Safety Report 7517150-3 (Version None)
Quarter: 2011Q2

REPORT INFORMATION
  Report Type: 
  Country: None (occurrence: None)
  Receive Date: 20110601
  Receipt Date: 20110523
  Transmission Date: 20111010
  Serious: Yes (Other)
  Sender: FDA-Public Use
  Company Number: US-PFIZER INC-2011111728

PATIENT
  Sex: Female
  Weight: 67.574 kg

DRUGS (3)
  1. ARIMIDEX [Suspect]
     Indication: BREAST CANCER
     Dosage: 1 MG, 1X/DAY
     Route: 048
     Dates: start: 20100101, end: 20110101
  2. AROMASIN [Suspect]
     Indication: BREAST CANCER
     Dosage: 25 MG, 1X/DAY
     Route: 048
     Dates: start: 20110101
  3. ACETYLSALICYLIC ACID [Concomitant]
     Dosage: 325 MG, AS NEEDED
     Route: 048

REACTIONS (4)
  - NAUSEA [None]
  - GASTRIC ULCER [None]
  - ABDOMINAL DISCOMFORT [None]
  - ABDOMINAL PAIN UPPER [None]
